FAERS Safety Report 20376515 (Version 3)
Quarter: 2022Q1

REPORT INFORMATION
  Report Type: Report from Study
  Country: BE (occurrence: BE)
  Receive Date: 20220125
  Receipt Date: 20220214
  Transmission Date: 20220424
  Serious: Yes (Death, Life-Threatening, Hospitalization, Other)
  Sender: FDA-Public Use
  Company Number: BE-BRISTOL-MYERS SQUIBB COMPANY-BMS-2022-009384

PATIENT
  Age: 67 Year
  Sex: Female
  Weight: 57 kg

DRUGS (7)
  1. NIVOLUMAB [Suspect]
     Active Substance: NIVOLUMAB
     Indication: Metastases to peritoneum
     Dosage: 240 MILLIGRAM, Q2WK
     Route: 042
     Dates: start: 20220113, end: 20220128
  2. OXALIPLATIN [Suspect]
     Active Substance: OXALIPLATIN
     Indication: Metastases to peritoneum
     Dosage: 90 MILLIGRAM, Q6WK
     Route: 033
     Dates: start: 20220112, end: 20220112
  3. ALLOPURINOL [Concomitant]
     Active Substance: ALLOPURINOL
     Indication: Arthritis
     Dosage: 1 X 0.5/D
     Route: 048
  4. INDAPAMIDE\PERINDOPRIL [Concomitant]
     Active Substance: INDAPAMIDE\PERINDOPRIL
     Indication: Hypertension
     Dosage: 1X1/D
     Route: 048
  5. LITICAN [ALIZAPRIDE] [Concomitant]
     Indication: Nausea
     Dosage: IF NECESSARY
     Route: 048
  6. MOVICOL [Concomitant]
     Active Substance: POLYETHYLENE GLYCOL 3350\POTASSIUM CHLORIDE\SODIUM BICARBONATE\SODIUM CHLORIDE
     Indication: Constipation
     Dosage: IF NECESSARY
     Route: 048
  7. PANTOPRAZOLE SODIUM [Concomitant]
     Active Substance: PANTOPRAZOLE SODIUM
     Indication: Hyperchlorhydria
     Dosage: 2X1/D
     Route: 048

REACTIONS (2)
  - Death [Fatal]
  - Vomiting [Recovered/Resolved]

NARRATIVE: CASE EVENT DATE: 20220113
